FAERS Safety Report 7541259-1 (Version None)
Quarter: 2011Q2

REPORT INFORMATION
  Report Type: 
  Country: None (occurrence: None)
  Receive Date: 20110610
  Receipt Date: 20110609
  Transmission Date: 20111010
  Serious: Yes (Other)
  Sender: FDA-Public Use
  Company Number: DK-ABBOTT-11P-044-0731434-00

PATIENT
  Sex: Male

DRUGS (1)
  1. HUMIRA [Suspect]
     Indication: ANKYLOSING SPONDYLITIS
     Route: 058
     Dates: start: 20070718

REACTIONS (3)
  - SKIN DISORDER [None]
  - PSORIASIS [None]
  - PUSTULAR PSORIASIS [None]
